FAERS Safety Report 9445515 (Version 1)
Quarter: 2013Q3

REPORT INFORMATION
  Report Type: Spontaneous
  Country: PT (occurrence: PT)
  Receive Date: 20130807
  Receipt Date: 20130807
  Transmission Date: 20140515
  Serious: Yes (Other)
  Sender: FDA-Public Use
  Company Number: PT-PERRIGO-13PT007885

PATIENT
  Age: 6 Year
  Sex: Male

DRUGS (6)
  1. ACETAMINOPHEN 650MG ER 544 [Suspect]
     Indication: HEADACHE
     Dosage: UNK, UNK
     Route: 048
  2. IBUPROFEN 200 MG 604 [Suspect]
     Indication: HEADACHE
     Dosage: UNK, UNK
     Route: 048
  3. LEUKOTRIENE RECEPTOR ANTAGONISTS [Concomitant]
     Indication: RHINITIS
     Dosage: UNK
     Route: 065
  4. LEUKOTRIENE RECEPTOR ANTAGONISTS [Concomitant]
     Indication: ASTHMA
  5. ANTIHISTAMINES [Concomitant]
     Indication: RHINITIS ALLERGIC
     Dosage: UNK
     Route: 048
  6. CORTICOSTEROID NOS [Concomitant]
     Indication: RHINITIS ALLERGIC
     Dosage: UNK
     Route: 045

REACTIONS (8)
  - Anaphylactic reaction [Recovered/Resolved]
  - Loss of consciousness [Recovered/Resolved]
  - Bronchospasm [Recovered/Resolved]
  - Respiratory distress [Recovered/Resolved]
  - Angioedema [Recovered/Resolved]
  - Vomiting [Recovered/Resolved]
  - Urticaria [Recovered/Resolved]
  - Cough [Recovered/Resolved]
